FAERS Safety Report 5804715-X (Version None)
Quarter: 2008Q3

REPORT INFORMATION
  Report Type: 
  Country: None (occurrence: None)
  Receive Date: 20080709
  Receipt Date: 20080704
  Transmission Date: 20090109
  Serious: Yes (Hospitalization)
  Sender: FDA-Public Use
  Company Number: CN-ASTRAZENECA-2008AP04950

PATIENT
  Sex: Female
  Weight: 60 kg

DRUGS (2)
  1. NAROPIN [Suspect]
     Indication: SURGERY
     Route: 042
     Dates: start: 20080301, end: 20080301
  2. LIDOCAINE [Suspect]
     Indication: SURGERY
     Route: 042
     Dates: start: 20080301, end: 20080301

REACTIONS (4)
  - DYSPNOEA [None]
  - ERYTHEMA [None]
  - NASAL CONGESTION [None]
  - URTICARIA [None]
